FAERS Safety Report 8058769-3 (Version None)
Quarter: 2012Q1

REPORT INFORMATION
  Report Type: 
  Country: None (occurrence: None)
  Receive Date: 20120120
  Receipt Date: 20120118
  Transmission Date: 20120608
  Serious: No
  Sender: FDA-Public Use
  Company Number: US-BAYER-2012-005611

PATIENT
  Sex: Female

DRUGS (2)
  1. CYMBALTA [Concomitant]
     Dosage: 30 MG, UNK
  2. MIRENA [Suspect]
     Indication: CONTRACEPTION
     Dosage: 20 ?G/D, CONT
     Route: 015
     Dates: start: 20100501, end: 20120118

REACTIONS (7)
  - NIGHT SWEATS [None]
  - PARAESTHESIA [None]
  - WEIGHT INCREASED [None]
  - PANIC ATTACK [None]
  - ARTHRALGIA [None]
  - DEPRESSION [None]
  - ALOPECIA [None]
